FAERS Safety Report 8125028-X (Version None)
Quarter: 2012Q1

REPORT INFORMATION
  Report Type: 
  Country: None (occurrence: None)
  Receive Date: 20120209
  Receipt Date: 20120206
  Transmission Date: 20120608
  Serious: Yes (Other)
  Sender: FDA-Public Use
  Company Number: BR-ROCHE-1037455

PATIENT

DRUGS (2)
  1. COPEGUS [Suspect]
     Indication: HEPATITIS C
  2. INTERFERON ALFA [Suspect]
     Indication: HEPATITIS C

REACTIONS (1)
  - THYROID DISORDER [None]
